FAERS Safety Report 7762285-3 (Version None)
Quarter: 2011Q3

REPORT INFORMATION
  Report Type: 
  Country: None (occurrence: None)
  Receive Date: 20110919
  Receipt Date: 20110919
  Transmission Date: 20111222
  Serious: Yes (Life-Threatening, Hospitalization, Other)
  Sender: FDA-Public Use
  Company Number: None

PATIENT
  Age: 85 Year
  Sex: Male
  Weight: 74.2 kg

DRUGS (1)
  1. DABIGATRAN [Suspect]
     Indication: ATRIAL FIBRILLATION
     Dosage: 150 MG BID PO, 81 MG EVERY DAY PO
     Route: 048
     Dates: start: 20110613, end: 20110909

REACTIONS (4)
  - MYOCARDIAL INFARCTION [None]
  - MELAENA [None]
  - HAEMORRHAGE [None]
  - GASTROINTESTINAL HAEMORRHAGE [None]
